FAERS Safety Report 10381243 (Version 1)
Quarter: 2014Q3

REPORT INFORMATION
  Report Type: Spontaneous
  Country: DE (occurrence: None)
  Receive Date: 20140812
  Receipt Date: 20140812
  Transmission Date: 20150326
  Serious: Yes (Hospitalization)
  Sender: FDA-Public Use
  Company Number: None

PATIENT
  Age: 52 Year
  Sex: Male
  Weight: 98 kg

DRUGS (6)
  1. SOFOSBUVIR [Suspect]
     Active Substance: SOFOSBUVIR
     Indication: HEPATITIS C
     Dosage: 100 MG ?1-0-0?ORAL
     Route: 048
     Dates: start: 20140307, end: 20140709
  2. RIBAVIRIN 200MG [Suspect]
     Active Substance: RIBAVIRIN
     Indication: HEPATITIS C
     Dosage: 200 MG ?1-0-1 ?ORAL
     Route: 048
     Dates: start: 20140307, end: 20140602
  3. PANTOZOL [Concomitant]
     Active Substance: PANTOPRAZOLE SODIUM
  4. AMARYL [Concomitant]
     Active Substance: GLIMEPIRIDE
  5. TILIDIN [Concomitant]
     Active Substance: NALOXONE HYDROCHLORIDE\TILIDINE HYDROCHLORIDE
  6. NEXIUM [Concomitant]
     Active Substance: ESOMEPRAZOLE MAGNESIUM

REACTIONS (5)
  - Oesophageal varices haemorrhage [None]
  - Oesophageal pain [None]
  - Chest pain [None]
  - Faeces discoloured [None]
  - Pyrexia [None]

NARRATIVE: CASE EVENT DATE: 20140602
